FAERS Safety Report 6151702-0 (Version None)
Quarter: 2009Q2

REPORT INFORMATION
  Report Type: 
  Country: None (occurrence: None)
  Receive Date: 20090410
  Receipt Date: 20090401
  Transmission Date: 20091009
  Serious: Yes (Death)
  Sender: FDA-Public Use
  Company Number: A0688571E

PATIENT
  Sex: Male
  Weight: 67.5 kg

DRUGS (3)
  1. LAPATINIB [Suspect]
     Dosage: 1500MG PER DAY
     Route: 048
     Dates: start: 20070926, end: 20080916
  2. CISPLATIN [Suspect]
     Dosage: 62.5MGM2 CYCLIC
     Route: 042
     Dates: start: 20071001, end: 20071119
  3. RADIOTHERAPY [Suspect]
     Dosage: 10GY PER DAY
     Route: 061
     Dates: start: 20071001, end: 20071123

REACTIONS (2)
  - DISORIENTATION [None]
  - METABOLIC DISORDER [None]
